FAERS Safety Report 14279747 (Version 6)
Quarter: 2018Q3

REPORT INFORMATION
  Report Type: Report from Study
  Country: DE (occurrence: DE)
  Receive Date: 20171212
  Receipt Date: 20180704
  Transmission Date: 20181010
  Serious: Yes (Death, Hospitalization)
  Sender: FDA-Public Use
  Company Number: DE-PFIZER INC-2017525555

PATIENT
  Age: 58 Year
  Sex: Female
  Weight: 75 kg

DRUGS (12)
  1. LYRICA [Concomitant]
     Active Substance: PREGABALIN
     Indication: POLYNEUROPATHY
     Dosage: 25 MG, 1X/DAY
     Route: 048
  2. HERCEPTIN [Suspect]
     Active Substance: TRASTUZUMAB
     Dosage: 460 MG, MAINTAINENCE DOSE
     Route: 042
     Dates: start: 20150817, end: 20160202
  3. LYRICA [Concomitant]
     Active Substance: PREGABALIN
     Dosage: 75 MG, 1X/DAY
     Route: 048
  4. PERTUZUMAB. [Suspect]
     Active Substance: PERTUZUMAB
     Dosage: 420 MG, EVERY 3 WEEKS, MAINTAINENCE DOSE
     Route: 042
     Dates: start: 20150817, end: 20160202
  5. SEVREDOL [Concomitant]
     Active Substance: MORPHINE
     Indication: PAIN
     Dosage: 20 MG, 1X/DAY, AS REQUIRED
     Route: 048
  6. HERCEPTIN [Suspect]
     Active Substance: TRASTUZUMAB
     Indication: HER-2 POSITIVE BREAST CANCER
     Dosage: 610 MG, SINGLE, LOADING DOSE
     Route: 042
     Dates: start: 20150727, end: 20150727
  7. FENTANYL. [Concomitant]
     Active Substance: FENTANYL
     Indication: PAIN
     Dosage: 75 UG/H, WITH A TIME INTERVAL OF 3 DAYS
     Route: 065
  8. PERTUZUMAB. [Suspect]
     Active Substance: PERTUZUMAB
     Indication: HER-2 POSITIVE BREAST CANCER
     Dosage: 840 MG, SINGLE, LOADING DOSE
     Route: 042
     Dates: start: 20150727, end: 20150727
  9. SEVREDOL [Concomitant]
     Active Substance: MORPHINE
     Dosage: 10 MG, 1X/DAY, AS REQUIRED
     Route: 048
  10. IBUPROFEN/PSEUDOEPHEDRINE [Concomitant]
     Indication: PAIN
     Dosage: 1600 MG, 1X/DAY, AS REQUIRED
     Route: 048
  11. DOCETAXEL. [Suspect]
     Active Substance: DOCETAXEL
     Indication: HER-2 POSITIVE BREAST CANCER
     Dosage: 140 MG, 3X/DAY, TID
     Route: 042
     Dates: start: 20150727, end: 20151020
  12. IBUPROFEN. [Concomitant]
     Active Substance: IBUPROFEN
     Indication: PAIN
     Dosage: 800 MG, 1X/DAY AS NEEDED
     Route: 048

REACTIONS (2)
  - Death [Fatal]
  - Erysipelas [Fatal]

NARRATIVE: CASE EVENT DATE: 20150824
